FAERS Safety Report 21783723 (Version 1)
Quarter: 2022Q4

REPORT INFORMATION
  Report Type: Spontaneous
  Country: US (occurrence: US)
  Receive Date: 20221227
  Receipt Date: 20221227
  Transmission Date: 20230112
  Serious: No
  Sender: FDA-Public Use
  Company Number: US-PFIZER INC-202201389217

PATIENT
  Age: 88 Year
  Sex: Male

DRUGS (3)
  1. VYNDAMAX [Interacting]
     Active Substance: TAFAMIDIS
     Dosage: UNK
  2. TYLENOL [Interacting]
     Active Substance: ACETAMINOPHEN
     Dosage: 1 DF, AS NEEDED (UP TO 4X A DAY: 1300MG OF ACETAMINOPHEN PER DAY)
  3. LIOTHYRONINE SODIUM [Concomitant]
     Active Substance: LIOTHYRONINE SODIUM
     Dosage: UNK

REACTIONS (1)
  - Drug interaction [Unknown]
